FAERS Safety Report 20098293 (Version 1)
Quarter: 2021Q4

REPORT INFORMATION
  Report Type: Spontaneous
  Country: FR (occurrence: FR)
  Receive Date: 20211122
  Receipt Date: 20211122
  Transmission Date: 20220303
  Serious: Yes (Life-Threatening, Other)
  Sender: FDA-Public Use
  Company Number: None

PATIENT
  Age: 70 Year
  Sex: Male
  Weight: 124 kg

DRUGS (15)
  1. CLOPIDOGREL [Interacting]
     Active Substance: CLOPIDOGREL BISULFATE
     Indication: Cardiovascular event prophylaxis
     Dosage: 150 MILLIGRAM, QD
     Route: 048
     Dates: end: 20210819
  2. LOVENOX [Interacting]
     Active Substance: ENOXAPARIN SODIUM
     Indication: Thrombosis prophylaxis
     Dosage: 18000 INTERNATIONAL UNIT, QD
     Route: 058
     Dates: start: 202108, end: 20210819
  3. ALLOPURINOL [Concomitant]
     Active Substance: ALLOPURINOL
     Dosage: 200 MILLIGRAM, QD
     Route: 048
     Dates: end: 20210819
  4. ATORVASTATINE                      /01326101/ [Concomitant]
     Dosage: 40 MILLIGRAM, QD
     Route: 048
     Dates: end: 20210819
  5. BISOPROLOL                         /00802602/ [Concomitant]
     Dosage: 5 MILLIGRAM, QD
     Route: 048
     Dates: end: 20210819
  6. POTASSIUM CHLORIDE [Concomitant]
     Active Substance: POTASSIUM CHLORIDE
     Dosage: 1.2 GRAM, QD
     Route: 048
     Dates: end: 20210819
  7. ECONAZOLE [Concomitant]
     Active Substance: ECONAZOLE
     Dosage: 2 DOSAGE FORM, QD
     Route: 003
     Dates: end: 20210819
  8. GENTAMICINE                        /00047101/ [Concomitant]
     Dosage: UNK, INCONNUE
     Route: 042
     Dates: start: 20210802, end: 20210805
  9. LINEZOLID [Concomitant]
     Active Substance: LINEZOLID
     Dosage: UNK, (INCONNUE)
     Route: 048
     Dates: start: 202108, end: 20210816
  10. METRONIDAZOLE [Concomitant]
     Active Substance: METRONIDAZOLE
     Dosage: UNK, (INCONNUE)
     Route: 048
     Dates: start: 202108, end: 202108
  11. ACETAMINOPHEN [Concomitant]
     Active Substance: ACETAMINOPHEN
     Dosage: 1 DOSAGE FORM, PRN
     Route: 048
     Dates: end: 20210819
  12. PYRIDOXINE HYDROCHLORIDE [Concomitant]
     Active Substance: PYRIDOXINE HYDROCHLORIDE
     Dosage: 50 MILLIGRAM, QD
     Route: 048
     Dates: end: 20210819
  13. RIFAMPIN [Concomitant]
     Active Substance: RIFAMPIN
     Dosage: 1.28 MILLIGRAM, QD (24 HRS)
     Route: 042
     Dates: start: 20210802, end: 202108
  14. THIAMINE HYDROCHLORIDE [Concomitant]
     Active Substance: THIAMINE HYDROCHLORIDE
     Dosage: 250 MILLIGRAM, QD
     Route: 048
     Dates: end: 20210819
  15. VANCOMYCINE                        /00314401/ [Concomitant]
     Dosage: 4 GRAM, QD (24 HRS)
     Route: 042
     Dates: start: 20210802, end: 20210811

REACTIONS (2)
  - Drug interaction [Recovered/Resolved]
  - Shock haemorrhagic [Recovered/Resolved]

NARRATIVE: CASE EVENT DATE: 20210819
